FAERS Safety Report 14149704 (Version 1)
Quarter: 2017Q4

REPORT INFORMATION
  Report Type: Not Available
  Country: US (occurrence: US)
  Receive Date: 20171101
  Receipt Date: 20171101
  Transmission Date: 20180321
  Serious: No
  Sender: FDA-Public Use
  Company Number: US-ANIPHARMA-2017-US-008362

PATIENT
  Age: 42 Year
  Sex: Female

DRUGS (1)
  1. FLECAINIDE ACETATE TABLETS 50 MG [Suspect]
     Active Substance: FLECAINIDE ACETATE
     Dosage: 2 TABLETS TWICE DAILY
     Route: 048
     Dates: start: 20170705

REACTIONS (2)
  - Generalised oedema [Not Recovered/Not Resolved]
  - Urine output decreased [Not Recovered/Not Resolved]

NARRATIVE: CASE EVENT DATE: 20170712
